FAERS Safety Report 10585384 (Version 1)
Quarter: 2014Q4

REPORT INFORMATION
  Report Type: Spontaneous
  Country: MY (occurrence: None)
  Receive Date: 20141113
  Receipt Date: 20141113
  Transmission Date: 20150529
  Serious: Yes (Other)
  Sender: FDA-Public Use
  Company Number: MY-ZYDUS-005437

PATIENT
  Age: 39 Year
  Sex: Male

DRUGS (1)
  1. SODIUM VALPROATE (SODIUM VALPROATE) [Suspect]
     Active Substance: VALPROATE SODIUM

REACTIONS (2)
  - Deafness neurosensory [None]
  - Drug level below therapeutic [None]
